FAERS Safety Report 6857753-2 (Version None)
Quarter: 2010Q3

REPORT INFORMATION
  Report Type: 
  Country: None (occurrence: None)
  Receive Date: 20100719
  Receipt Date: 20080128
  Transmission Date: 20110219
  Serious: No
  Sender: FDA-Public Use
  Company Number: US-PFIZER INC-2008009633

PATIENT
  Sex: Female
  Weight: 69.545 kg

DRUGS (4)
  1. CHANTIX [Suspect]
     Indication: SMOKING CESSATION THERAPY
     Dates: start: 20080126
  2. NEXIUM [Concomitant]
  3. RISPERDAL [Concomitant]
  4. TRAZODONE HYDROCHLORIDE [Concomitant]

REACTIONS (2)
  - DRUG PRESCRIBING ERROR [None]
  - NAUSEA [None]
